FAERS Safety Report 23718293 (Version 2)
Quarter: 2024Q2

REPORT INFORMATION
  Report Type: Spontaneous
  Country: GT (occurrence: GT)
  Receive Date: 20240408
  Receipt Date: 20240507
  Transmission Date: 20240715
  Serious: Yes (Death, Other)
  Sender: FDA-Public Use
  Company Number: GT-SEATTLE GENETICS-2024SGN02686

PATIENT
  Age: 76 Year
  Sex: Male

DRUGS (1)
  1. PADCEV [Suspect]
     Active Substance: ENFORTUMAB VEDOTIN-EJFV
     Indication: Transitional cell carcinoma
     Dosage: 1.25 MG/KG, UNKNOWN FREQ. (INJECTION, 4TH LINE TREATMENT)
     Route: 042
     Dates: start: 20240311, end: 20240401

REACTIONS (4)
  - Myocardial infarction [Fatal]
  - Physical disability [Unknown]
  - Haematuria [Recovered/Resolved]
  - Pain [Unknown]

NARRATIVE: CASE EVENT DATE: 20240315
